FAERS Safety Report 6917496-3 (Version None)
Quarter: 2010Q3

REPORT INFORMATION
  Report Type: 
  Country: None (occurrence: None)
  Receive Date: 20100805
  Receipt Date: 20100719
  Transmission Date: 20110219
  Serious: Yes (Other)
  Sender: FDA-Public Use
  Company Number: PPC201000042

PATIENT
  Age: 83 Year
  Sex: Female

DRUGS (7)
  1. DIPYRIDAMOLE [Suspect]
     Indication: PROPHYLAXIS
     Dosage: (150 MG, 150 MG TWICE DAILY)
  2. DIPYRIDAMOLE [Suspect]
     Indication: TRANSIENT ISCHAEMIC ATTACK
     Dosage: (150 MG, 150 MG TWICE DAILY)
  3. METOPROLOL SUCCINATE [Concomitant]
  4. CILAZAPRIL [Concomitant]
  5. ASPIRIN [Concomitant]
  6. FOLIC ACID [Concomitant]
  7. OMEPRAZOLE [Concomitant]

REACTIONS (3)
  - HALLUCINATION, AUDITORY [None]
  - INSOMNIA [None]
  - SOMNOLENCE [None]
